FAERS Safety Report 14168585 (Version 4)
Quarter: 2018Q2

REPORT INFORMATION
  Report Type: Spontaneous
  Country: US (occurrence: US)
  Receive Date: 20171107
  Receipt Date: 20180517
  Transmission Date: 20180711
  Serious: Yes (Other)
  Sender: FDA-Public Use
  Company Number: US-SA-2017SA184762

PATIENT
  Age: 75 Year
  Sex: Female

DRUGS (7)
  1. TOUJEO [Suspect]
     Active Substance: INSULIN GLARGINE
     Indication: TYPE 2 DIABETES MELLITUS
     Dosage: DOSE:10 UNIT(S)
     Route: 058
     Dates: start: 20170912
  2. TOUJEO [Suspect]
     Active Substance: INSULIN GLARGINE
     Indication: TYPE 2 DIABETES MELLITUS
     Route: 058
     Dates: start: 201708
  3. SOLOSTAR [Suspect]
     Active Substance: DEVICE
     Indication: TYPE 2 DIABETES MELLITUS
     Dates: start: 20170912
  4. SODIUM?HYALURONATE/HYLAN G-F 20 [Concomitant]
     Dosage: ONCE A WEEK FOR THREE ?WEEKS
     Route: 065
  5. APIDRA [Suspect]
     Active Substance: INSULIN GLULISINE
     Indication: TYPE 2 DIABETES MELLITUS
     Dosage: 3 UNITS BEFORE MEAL DOSE:3 UNIT(S)
     Route: 058
     Dates: start: 20180410
  6. SOLOSTAR [Suspect]
     Active Substance: DEVICE
     Indication: TYPE 2 DIABETES MELLITUS
     Dosage: 3 UNITS BEFORE MEAL
     Dates: start: 201708
  7. NOVOLOG [Suspect]
     Active Substance: INSULIN ASPART
     Route: 065

REACTIONS (11)
  - Psychomotor hyperactivity [Unknown]
  - Insomnia [Unknown]
  - Blood glucose abnormal [Unknown]
  - Bronchitis [Recovered/Resolved]
  - Neuropathy peripheral [Unknown]
  - Drug dose omission [Unknown]
  - Tooth abscess [Recovered/Resolved]
  - Blood glucose increased [Unknown]
  - Euphoric mood [Unknown]
  - Arthritis [Unknown]
  - Pyrexia [Unknown]

NARRATIVE: CASE EVENT DATE: 20180218
